FAERS Safety Report 20561890 (Version 1)
Quarter: 2022Q1

REPORT INFORMATION
  Report Type: Spontaneous
  Country: CN (occurrence: CN)
  Receive Date: 20220307
  Receipt Date: 20220307
  Transmission Date: 20220423
  Serious: Yes (Hospitalization)
  Sender: FDA-Public Use
  Company Number: CN-JNJFOC-20220260434

PATIENT
  Age: 49 Year
  Sex: Male

DRUGS (9)
  1. DARZALEX [Suspect]
     Active Substance: DARATUMUMAB
     Indication: Plasma cell myeloma
     Route: 041
     Dates: start: 20220126, end: 20220219
  2. DARZALEX [Suspect]
     Active Substance: DARATUMUMAB
     Route: 041
     Dates: start: 20220126, end: 20220219
  3. DARZALEX [Suspect]
     Active Substance: DARATUMUMAB
     Route: 041
     Dates: start: 20220126, end: 20220219
  4. DARZALEX [Suspect]
     Active Substance: DARATUMUMAB
     Route: 041
  5. IXAZOMIB CITRATE [Suspect]
     Active Substance: IXAZOMIB CITRATE
     Indication: Plasma cell myeloma
     Route: 048
     Dates: start: 20220121, end: 20220219
  6. METHYLPREDNISOLONE [Suspect]
     Active Substance: METHYLPREDNISOLONE
     Indication: Plasma cell myeloma
     Route: 065
     Dates: start: 20220126
  7. METHYLPREDNISOLONE [Suspect]
     Active Substance: METHYLPREDNISOLONE
     Route: 065
     Dates: start: 20220126
  8. METHYLPREDNISOLONE [Suspect]
     Active Substance: METHYLPREDNISOLONE
     Route: 065
     Dates: start: 20220126
  9. LECITHIN [Concomitant]
     Active Substance: LECITHIN
     Indication: Prophylaxis

REACTIONS (4)
  - Myelosuppression [Recovering/Resolving]
  - Ear pain [Unknown]
  - Hypoacusis [Unknown]
  - Otorrhoea [Unknown]

NARRATIVE: CASE EVENT DATE: 20220131
